FAERS Safety Report 23078929 (Version 1)
Quarter: 2023Q4

REPORT INFORMATION
  Report Type: Spontaneous
  Country: US (occurrence: US)
  Receive Date: 20231018
  Receipt Date: 20231018
  Transmission Date: 20240110
  Serious: No
  Sender: FDA-Public Use
  Company Number: US-OPELLA-2023OHG007000

PATIENT
  Sex: Male

DRUGS (1)
  1. SELSUN BLUE ITCHY DRY SCALP [Suspect]
     Active Substance: PYRITHIONE ZINC
     Indication: Product used for unknown indication
     Dates: start: 2021

REACTIONS (3)
  - Ocular hyperaemia [Unknown]
  - Skin swelling [Unknown]
  - Skin wrinkling [Unknown]
